FAERS Safety Report 4606984-0 (Version None)
Quarter: 2005Q1

REPORT INFORMATION
  Report Type: 
  Country: None (occurrence: None)
  Receive Date: 20050309
  Receipt Date: 20050223
  Transmission Date: 20050727
  Serious: Yes (Other)
  Sender: FDA-Public Use
  Company Number: SP00405

PATIENT
  Sex: Female

DRUGS (1)
  1. COLAZAL [Suspect]
     Indication: COLITIS ULCERATIVE
     Dates: start: 20031201

REACTIONS (1)
  - CRYPTOGENIC ORGANIZING PNEUMONIA [None]
